FAERS Safety Report 7608053-4 (Version None)
Quarter: 2011Q3

REPORT INFORMATION
  Report Type: 
  Country: None (occurrence: None)
  Receive Date: 20110714
  Receipt Date: 20110706
  Transmission Date: 20111222
  Serious: Yes (Hospitalization)
  Sender: FDA-Public Use
  Company Number: US-JNJFOC-20100201874

PATIENT
  Age: 59 Year
  Sex: Male

DRUGS (8)
  1. RISPERDAL CONSTA [Suspect]
     Indication: SCHIZOPHRENIA
     Route: 030
  2. VALPROIC ACID [Concomitant]
     Indication: SCHIZOPHRENIA
     Route: 065
  3. GLIMEPIRIDE [Concomitant]
     Route: 065
  4. ENALAPRIL MALEATE [Concomitant]
     Route: 065
  5. METFORMIN HCL [Concomitant]
     Route: 065
  6. SITAGLIPTIN [Concomitant]
     Route: 065
  7. HYDROCHLOROTHIAZIDE [Concomitant]
     Route: 065
  8. OLANZAPINE [Concomitant]
     Indication: SCHIZOPHRENIA
     Route: 065

REACTIONS (11)
  - BLOOD UREA INCREASED [None]
  - CONFUSIONAL STATE [None]
  - BLOOD GLUCOSE INCREASED [None]
  - DYSSTASIA [None]
  - TACHYCARDIA [None]
  - FATIGUE [None]
  - ATELECTASIS [None]
  - DISORIENTATION [None]
  - DELIRIUM [None]
  - DEHYDRATION [None]
  - DYSARTHRIA [None]
